FAERS Safety Report 23613469 (Version 1)
Quarter: 2024Q1

REPORT INFORMATION
  Report Type: Report from Study
  Country: US (occurrence: US)
  Receive Date: 20240308
  Receipt Date: 20240308
  Transmission Date: 20240410
  Serious: Yes (Other)
  Sender: FDA-Public Use
  Company Number: US-JAZZ PHARMACEUTICALS-2023-US-013722

PATIENT
  Age: 36 Year
  Sex: Female

DRUGS (6)
  1. XYREM [Suspect]
     Active Substance: SODIUM OXYBATE
     Indication: Narcolepsy
     Dosage: 2.5 GRAM, BID
     Dates: start: 20230617
  2. XYREM [Suspect]
     Active Substance: SODIUM OXYBATE
     Indication: Cataplexy
     Dosage: 3 GRAM, BID
     Dates: start: 20230617
  3. XYREM [Suspect]
     Active Substance: SODIUM OXYBATE
     Dosage: UNK
  4. PHENTERMINE [Concomitant]
     Active Substance: PHENTERMINE
     Indication: Product used for unknown indication
     Dosage: 15 MILLIGRAM, CAPSULE
     Dates: start: 20230127
  5. PHENTERMINE [Concomitant]
     Active Substance: PHENTERMINE
     Dosage: 37.5 MILLIGRAM, TABLET
     Dates: start: 20230213
  6. SERTRALINE HYDROCHLORIDE [Concomitant]
     Active Substance: SERTRALINE HYDROCHLORIDE
     Indication: Product used for unknown indication
     Dosage: UNK
     Dates: start: 20231110

REACTIONS (10)
  - Blood pressure increased [Unknown]
  - Headache [Recovered/Resolved]
  - Restless legs syndrome [Unknown]
  - Brain fog [Unknown]
  - Dyskinesia [Unknown]
  - Somnolence [Unknown]
  - Nausea [Unknown]
  - Tremor [Unknown]
  - Intentional product use issue [Unknown]
  - Product dose omission issue [Unknown]

NARRATIVE: CASE EVENT DATE: 20231101
